FAERS Safety Report 6489568-1 (Version None)
Quarter: 2009Q4

REPORT INFORMATION
  Report Type: 
  Country: None (occurrence: None)
  Receive Date: 20091210
  Receipt Date: 20091202
  Transmission Date: 20100525
  Serious: Yes (Life-Threatening, Other)
  Sender: FDA-Public Use
  Company Number: DE-GENENTECH-295499

PATIENT
  Sex: Female
  Weight: 62 kg

DRUGS (8)
  1. ACTIVASE [Suspect]
     Indication: CEREBROVASCULAR ACCIDENT
     Dosage: 56 MG, UNK
     Route: 042
     Dates: start: 20091125
  2. TICLOPIDINE HCL [Interacting]
     Indication: CORONARY ARTERY DISEASE
     Dosage: 250 MG, QD
     Route: 048
  3. TICLOPIDINE HCL [Interacting]
     Indication: ATRIAL FIBRILLATION
  4. BISOPROLOL [Concomitant]
     Indication: CORONARY ARTERY DISEASE
     Dosage: 10 MG, UNK
     Route: 048
  5. BISOPROLOL [Concomitant]
     Indication: ATRIAL FIBRILLATION
  6. FENOFIBRAT [Concomitant]
     Indication: DRUG USE FOR UNKNOWN INDICATION
     Dosage: 250 MG, UNK
  7. MAGNESIUM [Concomitant]
     Indication: DRUG USE FOR UNKNOWN INDICATION
     Dosage: UNK
  8. DUOTRAV [Concomitant]
     Indication: DRUG USE FOR UNKNOWN INDICATION
     Dosage: UNK

REACTIONS (8)
  - CEREBRAL HAEMORRHAGE [None]
  - COMA [None]
  - DRUG INTERACTION [None]
  - PARESIS [None]
  - PNEUMONIA [None]
  - SOMNOLENCE [None]
  - STATUS EPILEPTICUS [None]
  - VOMITING [None]
